FAERS Safety Report 24649154 (Version 2)
Quarter: 2024Q4

REPORT INFORMATION
  Report Type: Spontaneous
  Country: US (occurrence: US)
  Receive Date: 20241121
  Receipt Date: 20241129
  Transmission Date: 20250114
  Serious: No
  Sender: SANOFI AVENTIS
  Company Number: US-SA-2024SA339590

PATIENT
  Age: 32 Year
  Sex: Female

DRUGS (2)
  1. LOVENOX [Suspect]
     Active Substance: ENOXAPARIN SODIUM
     Indication: Embolism
     Dosage: 40 MG, QD
     Route: 058
  2. LOVENOX [Suspect]
     Active Substance: ENOXAPARIN SODIUM
     Indication: Maternal exposure during pregnancy

REACTIONS (2)
  - Exposure during pregnancy [Unknown]
  - Off label use [Unknown]
